FAERS Safety Report 17837202 (Version 1)
Quarter: 2020Q2

REPORT INFORMATION
  Report Type: Spontaneous
  Country: GR (occurrence: GR)
  Receive Date: 20200528
  Receipt Date: 20200528
  Transmission Date: 20200714
  Serious: Yes (Other)
  Sender: FDA-Public Use
  Company Number: GR-UCBSA-2020020674

PATIENT
  Age: 71 Year
  Sex: Male

DRUGS (8)
  1. LERCADIP [LERCANIDIPINE] [Concomitant]
     Indication: HYPERTENSION
  2. KEPPRA [Suspect]
     Active Substance: LEVETIRACETAM
     Indication: MUSCLE SPASMS
     Dosage: 500 MILLIGRAM, 2X/DAY (BID)
  3. DEXAMETHASONE. [Concomitant]
     Active Substance: DEXAMETHASONE
     Indication: PRODUCT USED FOR UNKNOWN INDICATION
     Dosage: UNK
  4. KEPPRA [Suspect]
     Active Substance: LEVETIRACETAM
     Indication: OFF LABEL USE
     Dosage: 1000 MILLIGRAM, 2X/DAY (BID)
     Dates: start: 20200310
  5. ZURCAZOL [Concomitant]
     Active Substance: PANTOPRAZOLE SODIUM
     Indication: GASTRIC DISORDER
     Dosage: 40 MILLIGRAM, ONCE DAILY (QD)
  6. LUCIDEL [Concomitant]
     Active Substance: IRBESARTAN
     Indication: HYPERTENSION
  7. GLUCOPHAGE [Concomitant]
     Active Substance: METFORMIN HYDROCHLORIDE
     Indication: BLOOD GLUCOSE ABNORMAL
     Dosage: 2000 MILLIGRAM, ONCE DAILY (QD)
  8. RIDOCA [Concomitant]
     Indication: CHEMOTHERAPY
     Dosage: 280 MILLIGRAM, ONCE DAILY (QD)

REACTIONS (8)
  - Rash [Unknown]
  - Decreased appetite [Unknown]
  - Fatigue [Unknown]
  - Weight decreased [Unknown]
  - Off label use [Unknown]
  - Somnolence [Unknown]
  - Dizziness [Unknown]
  - Glioblastoma [Unknown]

NARRATIVE: CASE EVENT DATE: 20191112
